FAERS Safety Report 20763725 (Version 1)
Quarter: 2022Q2

REPORT INFORMATION
  Report Type: Report from Study
  Country: US (occurrence: US)
  Receive Date: 20220428
  Receipt Date: 20220428
  Transmission Date: 20220721
  Serious: Yes (Other)
  Sender: FDA-Public Use
  Company Number: US-BRISTOL-MYERS SQUIBB COMPANY-2022-024199

PATIENT
  Age: 70 Year
  Sex: Female
  Weight: 62.1 kg

DRUGS (7)
  1. REVLIMID [Suspect]
     Active Substance: LENALIDOMIDE
     Indication: Plasma cell myeloma
     Dosage: FREQUENCY: 1 CAPSULE EVERY OTHER DAY ON DAYS 1 THROUGH 21 EVERY 28 DAYS
     Route: 048
     Dates: start: 201903
  2. ZETIA [Suspect]
     Active Substance: EZETIMIBE
     Indication: Product used for unknown indication
  3. DARZALEX [Suspect]
     Active Substance: DARATUMUMAB
     Indication: Product used for unknown indication
  4. OVIIT VITAMIN D 1000 [Concomitant]
     Dosage: 10 MCG TABLET
  5. XTAMPZA ER [Concomitant]
     Active Substance: OXYCODONE
     Dosage: SPR 12
  6. DEXAMETHASONE [Concomitant]
     Active Substance: DEXAMETHASONE
  7. ASPIRIN [Concomitant]
     Active Substance: ASPIRIN

REACTIONS (4)
  - Blood pressure fluctuation [Unknown]
  - Dyspnoea [Unknown]
  - Acquired cerebral palsy [Unknown]
  - Dizziness [Unknown]
